FAERS Safety Report 8961592 (Version 1)
Quarter: 2012Q4

REPORT INFORMATION
  Report Type: 
  Country: US (occurrence: US)
  Receive Date: 20121213
  Receipt Date: 20121213
  Transmission Date: 20130627
  Serious: No
  Sender: FDA-Public Use
  Company Number: US-ALLERGAN-1216205US

PATIENT
  Age: 55 Year
  Sex: Male

DRUGS (3)
  1. LUMIGAN� 0.01% [Suspect]
     Indication: INCREASED INTRAOCULAR PRESSURE
     Dosage: 2 Gtt, qd
     Route: 047
     Dates: start: 20121117, end: 20121119
  2. NORVASC                            /00972401/ [Concomitant]
     Indication: HYPERTENSION
     Dosage: 5 mg, qd
     Route: 048
     Dates: start: 1997
  3. HCTZ [Concomitant]
     Indication: HYPERTENSION
     Dosage: 12.5 mg, qd
     Route: 048
     Dates: start: 1997

REACTIONS (3)
  - Headache [Unknown]
  - Eye pain [Unknown]
  - Ocular hyperaemia [Unknown]
